FAERS Safety Report 7483321-8 (Version None)
Quarter: 2011Q2

REPORT INFORMATION
  Report Type: 
  Country: None (occurrence: None)
  Receive Date: 20110517
  Receipt Date: 20110502
  Transmission Date: 20111010
  Serious: Yes (Disabling, Other)
  Sender: FDA-Public Use
  Company Number: US-JNJFOC-20041006782

PATIENT
  Sex: Male
  Weight: 101.15 kg

DRUGS (20)
  1. RISPERDAL [Suspect]
     Dosage: AT NIGHT
     Route: 048
     Dates: start: 20010216, end: 20010518
  2. XENICAL [Concomitant]
     Indication: WEIGHT INCREASED
     Dates: start: 20010111
  3. ADDERALL 10 [Concomitant]
  4. RISPERDAL [Suspect]
     Dosage: AT BEDTIME
     Route: 048
     Dates: start: 20011228
  5. RISPERDAL [Suspect]
     Dosage: 0.5 MG DAILY X 4, THEN 1 MG DAILY X 4, THEN 1.5 MG DAILY X 4
     Route: 048
     Dates: start: 20001211
  6. ADDERALL 10 [Concomitant]
     Dates: start: 20001211, end: 20010101
  7. RISPERDAL [Suspect]
     Indication: BIPOLAR DISORDER
     Route: 048
     Dates: start: 20010518, end: 20010613
  8. PAXIL [Concomitant]
  9. PHENTERMINE HYDROCHLORIDE [Concomitant]
     Dates: start: 20010316
  10. ZYPREXA [Concomitant]
     Indication: PRODUCT USED FOR UNKNOWN INDICATION
     Dates: start: 20010124
  11. PAXIL [Concomitant]
     Dosage: ^REDUCE^
     Dates: start: 20001211
  12. DICYCLOMINE [Suspect]
     Indication: PRODUCT USED FOR UNKNOWN INDICATION
     Dates: end: 20010205
  13. AMBIEN [Concomitant]
  14. CELEXA [Concomitant]
  15. RISPERDAL [Suspect]
     Route: 048
     Dates: start: 20010124
  16. RISPERDAL [Suspect]
     Dosage: 1/2 TO 1 TABLET HS
     Route: 048
     Dates: start: 20010103
  17. RISPERDAL [Suspect]
     Route: 048
     Dates: start: 20010613, end: 20011015
  18. ZOLOFT [Concomitant]
  19. NEXIUM [Concomitant]
  20. PEPCID [Concomitant]
     Dates: start: 20001214

REACTIONS (17)
  - ABDOMINAL DISTENSION [None]
  - WEIGHT INCREASED [None]
  - TARDIVE DYSKINESIA [None]
  - DYSTONIA [None]
  - DIZZINESS [None]
  - CHOLELITHIASIS [None]
  - EXTRAPYRAMIDAL DISORDER [None]
  - HYPERHIDROSIS [None]
  - HEPATIC STEATOSIS [None]
  - DECREASED APPETITE [None]
  - LETHARGY [None]
  - NAUSEA [None]
  - RENAL CYST [None]
  - ABDOMINAL PAIN [None]
  - ANXIETY [None]
  - DEPRESSION [None]
  - GALLBLADDER POLYP [None]
